FAERS Safety Report 5813009-8 (Version None)
Quarter: 2008Q3

REPORT INFORMATION
  Report Type: 
  Country: None (occurrence: None)
  Receive Date: 20080717
  Receipt Date: 20071016
  Transmission Date: 20090109
  Serious: No
  Sender: FDA-Public Use
  Company Number: A0687794A

PATIENT
  Age: 22 Year
  Sex: Female

DRUGS (1)
  1. NICORETTE (MINT) [Suspect]
     Dates: start: 20071009

REACTIONS (3)
  - BLOOD URINE PRESENT [None]
  - OROPHARYNGEAL PAIN [None]
  - SALIVA ALTERED [None]
